FAERS Safety Report 6843176-9 (Version None)
Quarter: 2010Q3

REPORT INFORMATION
  Report Type: 
  Country: None (occurrence: None)
  Receive Date: 20100715
  Receipt Date: 20100706
  Transmission Date: 20110219
  Serious: No
  Sender: FDA-Public Use
  Company Number: US-BIOGENIDEC-2010BI023055

PATIENT
  Age: 38 Year
  Sex: Female

DRUGS (1)
  1. TYSABRI [Suspect]
     Indication: MULTIPLE SCLEROSIS
     Route: 042
     Dates: start: 20091218

REACTIONS (7)
  - DRY SKIN [None]
  - EAR INFECTION [None]
  - NASOPHARYNGITIS [None]
  - SKIN EXFOLIATION [None]
  - SKIN FISSURES [None]
  - SKIN SWELLING [None]
  - TINEA PEDIS [None]
